FAERS Safety Report 4567188-3 (Version None)
Quarter: 2005Q1

REPORT INFORMATION
  Report Type: 
  Country: None (occurrence: None)
  Receive Date: 20050201
  Receipt Date: 20050128
  Transmission Date: 20050727
  Serious: Yes (Hospitalization)
  Sender: FDA-Public Use
  Company Number: BR-GLAXOSMITHKLINE-A0543113A

PATIENT
  Age: 26 Year
  Sex: Female
  Weight: 42 kg

DRUGS (3)
  1. SERETIDE [Suspect]
     Indication: ASTHMA
     Dosage: 1PUFF PER DAY
     Route: 055
  2. FLUOXETINA [Concomitant]
  3. NOVALGINA [Concomitant]
     Dosage: 500MG PER DAY

REACTIONS (6)
  - BRADYCARDIA [None]
  - EYE IRRITATION [None]
  - EYE PRURITUS [None]
  - OBSTRUCTIVE AIRWAYS DISORDER [None]
  - OEDEMA [None]
  - ORAL PRURITUS [None]
